FAERS Safety Report 13431596 (Version 3)
Quarter: 2020Q1

REPORT INFORMATION
  Report Type: Spontaneous
  Country: US (occurrence: US)
  Receive Date: 20170412
  Receipt Date: 20200211
  Transmission Date: 20200409
  Serious: Yes (Hospitalization, Other)
  Sender: FDA-Public Use
  Company Number: US-JNJFOC-20170403041

PATIENT
  Age: 33 Year
  Sex: Female
  Weight: 51.94 kg

DRUGS (2)
  1. XARELTO [Suspect]
     Active Substance: RIVAROXABAN
     Indication: COAGULOPATHY
     Route: 048
     Dates: start: 20131230, end: 20150506
  2. XARELTO [Suspect]
     Active Substance: RIVAROXABAN
     Indication: METHYLENETETRAHYDROFOLATE REDUCTASE DEFICIENCY

REACTIONS (5)
  - Haematochezia [Recovering/Resolving]
  - Fatigue [Unknown]
  - Haematuria [Recovered/Resolved]
  - Cerebral haemorrhage [Recovering/Resolving]
  - Internal haemorrhage [Unknown]

NARRATIVE: CASE EVENT DATE: 201503
